FAERS Safety Report 7972045-6 (Version None)
Quarter: 2011Q4

REPORT INFORMATION
  Report Type: 
  Country: None (occurrence: None)
  Receive Date: 20111212
  Receipt Date: 20111130
  Transmission Date: 20120403
  Serious: Yes (Hospitalization)
  Sender: FDA-Public Use
  Company Number: US-ELI_LILLY_AND_COMPANY-US201110004665

PATIENT
  Sex: Female

DRUGS (31)
  1. FORTEO [Suspect]
     Dosage: 20 UG, QD
     Dates: start: 20111017, end: 20111104
  2. SOMA [Concomitant]
  3. TOPROL-XL [Concomitant]
  4. MIRALAX [Concomitant]
  5. OXYBUTYNIN [Concomitant]
  6. LYRICA [Concomitant]
     Dosage: 100 MG, TID
  7. VALTREX [Concomitant]
  8. NEXIUM [Concomitant]
  9. LEVOTHYROXINE SODIUM [Concomitant]
  10. MUCINEX [Concomitant]
  11. VITAMIN D [Concomitant]
  12. PREDNISONE [Concomitant]
     Dosage: 5 MG, BID
  13. METHOTREXATE [Concomitant]
     Dosage: 5 MG, 2/W
  14. ASPIRIN [Concomitant]
     Dosage: 81 MG, QD
  15. ATROVENT [Concomitant]
  16. ADVAIR DISKUS 100/50 [Concomitant]
  17. FORTEO [Suspect]
     Indication: OSTEOPOROSIS
     Dosage: 20 UG, QD
     Dates: start: 20110101, end: 20110926
  18. CYMBALTA [Concomitant]
     Dosage: 60 MG, BID
  19. MULTI-VITAMIN [Concomitant]
  20. CALCIUM [Concomitant]
  21. FOLIC ACID [Concomitant]
  22. IRON [Concomitant]
  23. FENTANYL [Concomitant]
     Dosage: 25 MG, UNK
  24. FLEXERIL [Concomitant]
     Dosage: 5 MG, BID
  25. ANALGESICS [Concomitant]
     Indication: PAIN
     Dosage: UNK, UNKNOWN
  26. CLARITIN [Concomitant]
  27. DITROPAN [Concomitant]
  28. FORTEO [Suspect]
     Dosage: 20 UG, QD
  29. HYDROCODONE [Concomitant]
  30. REQUIP [Concomitant]
  31. ANALGESICS [Concomitant]
     Dosage: UNK, QD

REACTIONS (10)
  - HYPOPHAGIA [None]
  - MENTAL STATUS CHANGES [None]
  - HYPERTENSION [None]
  - UNRESPONSIVE TO STIMULI [None]
  - CONSTIPATION [None]
  - DEHYDRATION [None]
  - DIARRHOEA [None]
  - MALAISE [None]
  - DRY MOUTH [None]
  - OEDEMA PERIPHERAL [None]
